FAERS Safety Report 21618140 (Version 2)
Quarter: 2024Q2

REPORT INFORMATION
  Report Type: Spontaneous
  Country: US (occurrence: US)
  Receive Date: 20221119
  Receipt Date: 20240413
  Transmission Date: 20240716
  Serious: Yes (Other)
  Sender: FDA-Public Use
  Company Number: US-ABBVIE-4206663

PATIENT
  Sex: Male

DRUGS (1)
  1. IMBRUVICA [Suspect]
     Active Substance: IBRUTINIB
     Indication: Hodgkin^s disease
     Dosage: FORM STRENGTH: 420 MILLIGRAM
     Route: 048

REACTIONS (13)
  - Blindness transient [Recovered/Resolved]
  - Meningitis chemical [Unknown]
  - Vocal cord paralysis [Recovered/Resolved]
  - Encephalitis allergic [Unknown]
  - Autoimmune disorder [Unknown]
  - Glaucoma [Unknown]
  - Oligospermia [Recovered/Resolved]
  - Retinal disorder [Unknown]
  - Infertility [Unknown]
  - Unevaluable event [Recovered/Resolved]
  - Optic nerve disorder [Unknown]
  - Arterial thrombosis [Unknown]
  - Embolism arterial [Unknown]
